FAERS Safety Report 6290022-0 (Version None)
Quarter: 2009Q3

REPORT INFORMATION
  Report Type: 
  Country: None (occurrence: None)
  Receive Date: 20090730
  Receipt Date: 20081029
  Transmission Date: 20100115
  Serious: No
  Sender: FDA-Public Use
  Company Number: US-BRISTOL-MYERS SQUIBB COMPANY-14387914

PATIENT
  Age: 69 Year
  Sex: Female
  Weight: 81 kg

DRUGS (8)
  1. COUMADIN [Suspect]
     Indication: PULMONARY THROMBOSIS
     Dates: start: 20081001
  2. GLUCOTROL XL [Concomitant]
  3. NEXIUM [Concomitant]
  4. LISINOPRIL [Concomitant]
  5. HYDROCHLOROTHIAZIDE [Concomitant]
  6. GABAPENTIN [Concomitant]
  7. SIMVASTATIN [Concomitant]
  8. TRAZODONE HCL [Concomitant]

REACTIONS (2)
  - INSOMNIA [None]
  - INTERNATIONAL NORMALISED RATIO FLUCTUATION [None]
